FAERS Safety Report 5565473-X (Version None)
Quarter: 2007Q4

REPORT INFORMATION
  Report Type: 
  Country: None (occurrence: None)
  Receive Date: 20071130
  Receipt Date: 20070910
  Transmission Date: 20080405
  Serious: No
  Sender: FDA-Public Use
  Company Number: US200709001575

PATIENT
  Age: 53 Year
  Sex: Male

DRUGS (3)
  1. BYETTA [Suspect]
     Dosage: 10 UG, 2/D
     Dates: start: 20070101, end: 20070806
  2. BYETTA [Suspect]
     Dosage: 10 UG, 2/D
     Dates: start: 20070827, end: 20070909
  3. BYETTA [Suspect]
     Dosage: 10 UG, 2/D
     Dates: start: 20070910

REACTIONS (5)
  - LIP SWELLING [None]
  - NAUSEA [None]
  - RASH [None]
  - SWELLING FACE [None]
  - URTICARIA [None]
